FAERS Safety Report 6256799-5 (Version None)
Quarter: 2009Q3

REPORT INFORMATION
  Report Type: 
  Country: None (occurrence: None)
  Receive Date: 20090701
  Receipt Date: 20090701
  Transmission Date: 20100115
  Serious: Yes (Hospitalization)
  Sender: FDA-Public Use
  Company Number: None

PATIENT
  Age: 30 Year
  Sex: Female
  Weight: 48.9885 kg

DRUGS (2)
  1. BUPROPION HCL [Suspect]
     Indication: DEPRESSION
     Dosage: ONE TABLET ONCE PER DAY PO
     Route: 048
     Dates: start: 20090615, end: 20090629
  2. WELLBUTRIN XL [Suspect]

REACTIONS (6)
  - EMOTIONAL DISTRESS [None]
  - IMPAIRED WORK ABILITY [None]
  - PRURITUS [None]
  - RASH [None]
  - REACTION TO COLOURING [None]
  - URTICARIA [None]
